FAERS Safety Report 5126886-3 (Version None)
Quarter: 2006Q4

REPORT INFORMATION
  Report Type: 
  Country: None (occurrence: None)
  Receive Date: 20061011
  Receipt Date: 20061011
  Transmission Date: 20070319
  Serious: No
  Sender: FDA-Public Use
  Company Number: None

PATIENT
  Age: 63 Year
  Sex: Female
  Weight: 68.0396 kg

DRUGS (2)
  1. NAPROXEN [Suspect]
     Indication: POST PROCEDURAL COMPLICATION
     Dosage: 1 TABLET 3 @ DAY PO
     Route: 048
     Dates: start: 20060829, end: 20060929
  2. NAPROXEN [Suspect]
     Indication: SWELLING
     Dosage: 1 TABLET 3 @ DAY PO
     Route: 048
     Dates: start: 20060829, end: 20060929

REACTIONS (2)
  - DRUG INEFFECTIVE [None]
  - PHARMACEUTICAL PRODUCT COMPLAINT [None]
